FAERS Safety Report 9498821 (Version 1)
Quarter: 2013Q3

REPORT INFORMATION
  Report Type: Spontaneous
  Country: PR (occurrence: None)
  Receive Date: 20130830
  Receipt Date: 20130830
  Transmission Date: 20140515
  Serious: Yes (Other)
  Sender: FDA-Public Use
  Company Number: 201308000266

PATIENT
  Age: 47 Year
  Sex: Male

DRUGS (5)
  1. INOMAX (NITRIC OXIDE) [Suspect]
     Dosage: 20 PPM, CONTINUOUS
     Route: 055
     Dates: start: 20130823, end: 20130825
  2. INOMAX (NITRIC OXIDE) [Suspect]
     Dosage: 20 PPM, CONTINUOUS
     Route: 055
     Dates: start: 20130823, end: 20130825
  3. ANTIBIOTICS [Concomitant]
  4. GLUCOCORTICOSTEROIDS [Concomitant]
  5. OXYGEN [Concomitant]

REACTIONS (4)
  - Haemoglobin decreased [None]
  - Oxygen saturation decreased [None]
  - Platelet count decreased [None]
  - Off label use [None]
